FAERS Safety Report 9528157 (Version 1)
Quarter: 2013Q3

REPORT INFORMATION
  Report Type: Spontaneous
  Country: JP (occurrence: JP)
  Receive Date: 20130917
  Receipt Date: 20130917
  Transmission Date: 20140515
  Serious: Yes (Other)
  Sender: FDA-Public Use
  Company Number: PHHY2013JP101948

PATIENT
  Age: 23 Year
  Sex: Male

DRUGS (6)
  1. PAROXETINE [Suspect]
     Dosage: UNK UKN, UNK
  2. CARBAMAZEPINE [Suspect]
     Dosage: 400 MG, UNK
  3. CARBAMAZEPINE [Suspect]
     Dosage: UNK UKN, UNK (DOSE INCREASED)
  4. CARBAMAZEPINE [Suspect]
     Dosage: UNK UKN, UNK
  5. PAROXETINE [Suspect]
     Dosage: UNK UKN, UNK
  6. PAROXETINE [Suspect]
     Dosage: UNK UKN, UNK (DOSE INCREASED)

REACTIONS (5)
  - Hypersexuality [Unknown]
  - Anxiety [Unknown]
  - Nausea [Unknown]
  - Dizziness [Unknown]
  - Fatigue [Unknown]
